FAERS Safety Report 4330486-2 (Version None)
Quarter: 2004Q1

REPORT INFORMATION
  Report Type: 
  Country: None (occurrence: None)
  Receive Date: 20040330
  Receipt Date: 20040318
  Transmission Date: 20041129
  Serious: Yes (Other)
  Sender: FDA-Public Use
  Company Number: JP-SHR-04-022722

PATIENT
  Age: 59 Year
  Sex: Female

DRUGS (1)
  1. PROSCOPE 300 (IOPROMIDE) [Suspect]
     Indication: COMPUTERISED TOMOGRAM
     Dosage: 100 ML, 1 DOSE, INTRAVENOUS
     Route: 042
     Dates: start: 20040310, end: 20040310

REACTIONS (2)
  - ANAPHYLACTIC SHOCK [None]
  - IODINE ALLERGY [None]
